FAERS Safety Report 6651110 (Version 2)
Quarter: 2020Q3

REPORT INFORMATION
  Report Type: Spontaneous
  Country: AU (occurrence: AU)
  Receive Date: 20080528
  Receipt Date: 20080606
  Transmission Date: 20201104
  Serious: Yes (Hospitalization)
  Sender: FDA-Public Use
  Company Number: AU-ABBOTT-08P-008-0453067-00

PATIENT
  Age: 15 Year
  Sex: Male
  Weight: 69 kg

DRUGS (11)
  1. OXYGEN. [Suspect]
     Active Substance: OXYGEN
     Indication: ANAESTHESIA
     Dosage: NOT REPORTED
  2. SERATIDE [Concomitant]
     Indication: ASTHMA
     Dosage: NOT REPORTED
     Route: 055
  3. PARACETAMOL [Suspect]
     Active Substance: ACETAMINOPHEN
     Indication: ANALGESIC THERAPY
     Route: 042
  4. MIDAZOLAM HYDROCHLORIDE. [Suspect]
     Active Substance: MIDAZOLAM HYDROCHLORIDE
     Indication: ANAESTHESIA
     Route: 042
  5. NITROUS OXIDE. [Suspect]
     Active Substance: NITROUS OXIDE
     Indication: ANAESTHESIA
     Route: 055
  6. SALBUTAMOL SULFATE [Concomitant]
     Indication: ASTHMA
     Dosage: NOT REPORTED
     Route: 055
  7. SEVOFLURANE. [Suspect]
     Active Substance: SEVOFLURANE
     Indication: ANAESTHESIA
     Route: 055
  8. PARECOXIB SODIUM. [Suspect]
     Active Substance: PARECOXIB SODIUM
     Indication: ANALGESIC THERAPY
     Route: 065
  9. PROPOFOL. [Suspect]
     Active Substance: PROPOFOL
     Indication: ANAESTHESIA
     Route: 042
  10. MORPHINE [Concomitant]
     Active Substance: MORPHINE
     Indication: ANALGESIC THERAPY
     Dosage: 20 ML IN DIVDED DOSES
     Route: 065
  11. FENTANYL. [Suspect]
     Active Substance: FENTANYL
     Indication: ANAESTHESIA
     Route: 050

REACTIONS (1)
  - Migraine with aura [Recovered/Resolved]
